FAERS Safety Report 18352862 (Version 1)
Quarter: 2020Q4

REPORT INFORMATION
  Report Type: Spontaneous
  Country: US (occurrence: US)
  Receive Date: 20201006
  Receipt Date: 20201006
  Transmission Date: 20210114
  Serious: No
  Sender: FDA-Public Use
  Company Number: US-ALLERGAN-1936862US

PATIENT
  Age: 6 Decade
  Sex: Female

DRUGS (1)
  1. LINZESS [Suspect]
     Active Substance: LINACLOTIDE
     Indication: WEIGHT DECREASED
     Dosage: 290 ?G

REACTIONS (3)
  - Arthralgia [Unknown]
  - Off label use [Unknown]
  - Back pain [Unknown]
